FAERS Safety Report 7338365-3 (Version None)
Quarter: 2011Q1

REPORT INFORMATION
  Report Type: 
  Country: None (occurrence: None)
  Receive Date: 20110303
  Receipt Date: 20110303
  Transmission Date: 20110831
  Serious: Yes (Hospitalization)
  Sender: FDA-Public Use
  Company Number: None

PATIENT
  Age: 60 Year
  Sex: Male

DRUGS (1)
  1. IBUPROFEN [Suspect]
     Indication: PAIN
     Dosage: 600 MG TID PO
     Route: 048
     Dates: start: 20070712, end: 20101223

REACTIONS (5)
  - ALCOHOL USE [None]
  - DIVERTICULUM INTESTINAL [None]
  - GASTRIC HAEMORRHAGE [None]
  - HAEMOGLOBIN DECREASED [None]
  - ARTERIOVENOUS MALFORMATION [None]
